FAERS Safety Report 9850565 (Version 1)
Quarter: 2014Q1

REPORT INFORMATION
  Report Type: Report from Study
  Country: US (occurrence: US)
  Receive Date: 20140128
  Receipt Date: 20140128
  Transmission Date: 20141002
  Serious: Yes (Hospitalization, Other)
  Sender: FDA-Public Use
  Company Number: US-ABBVIE-14P-163-1191525-00

PATIENT
  Age: 61 Year
  Sex: Female
  Weight: 77.63 kg

DRUGS (10)
  1. HUMIRA [Suspect]
     Indication: RHEUMATOID ARTHRITIS
     Dates: start: 201210
  2. ORENCIA [Interacting]
     Indication: PRODUCT USED FOR UNKNOWN INDICATION
  3. PRILOSEC [Interacting]
     Indication: GASTROOESOPHAGEAL REFLUX DISEASE
  4. RANITIDINE [Concomitant]
     Indication: GASTROOESOPHAGEAL REFLUX DISEASE
  5. ENBREL [Concomitant]
     Indication: PRODUCT USED FOR UNKNOWN INDICATION
     Dates: start: 20131206
  6. MELOXICAM [Concomitant]
     Indication: RHEUMATOID ARTHRITIS
  7. MELOXICAM [Concomitant]
  8. TRAMADOL [Concomitant]
     Indication: PRODUCT USED FOR UNKNOWN INDICATION
  9. MOBIC [Concomitant]
     Indication: PRODUCT USED FOR UNKNOWN INDICATION
  10. ZYRTEC [Concomitant]
     Indication: PRODUCT USED FOR UNKNOWN INDICATION

REACTIONS (12)
  - Local swelling [Recovered/Resolved]
  - Kidney infection [Recovered/Resolved]
  - Blood pressure increased [Recovered/Resolved]
  - Pyrexia [Recovered/Resolved]
  - Local swelling [Unknown]
  - Urinary tract infection [Unknown]
  - Urinary tract infection [Unknown]
  - Urinary tract infection [Unknown]
  - Generalised oedema [Recovered/Resolved]
  - Pruritus [Recovered/Resolved]
  - Urticaria [Recovered/Resolved]
  - Drug interaction [Recovered/Resolved]
